FAERS Safety Report 7699449-3 (Version None)
Quarter: 2011Q3

REPORT INFORMATION
  Report Type: 
  Country: None (occurrence: None)
  Receive Date: 20110820
  Receipt Date: 20101005
  Transmission Date: 20111222
  Serious: No
  Sender: FDA-Public Use
  Company Number: US-ALLERGAN-1012823US

PATIENT
  Age: 70 Year
  Sex: Male

DRUGS (1)
  1. SANCTURA XR [Suspect]
     Indication: URINARY TRACT DISORDER
     Dosage: 60 MG, QD
     Route: 048
     Dates: start: 20101001

REACTIONS (1)
  - URINARY RETENTION [None]
